FAERS Safety Report 9187351 (Version 2)
Quarter: 2013Q1

REPORT INFORMATION
  Report Type: Report from Study
  Country: UY (occurrence: UY)
  Receive Date: 20130325
  Receipt Date: 20130327
  Transmission Date: 20140127
  Serious: Yes (Death, Other)
  Sender: FDA-Public Use
  Company Number: UY-ROCHE-1205715

PATIENT
  Sex: Female

DRUGS (2)
  1. CAPECITABINE [Suspect]
     Indication: COLORECTAL CANCER
     Route: 065
     Dates: start: 2011
  2. OXALIPLATIN [Concomitant]
     Route: 065
     Dates: start: 2011

REACTIONS (2)
  - Renal failure [Fatal]
  - Tuberculosis [Unknown]
